FAERS Safety Report 5923275-6 (Version None)
Quarter: 2008Q4

REPORT INFORMATION
  Report Type: 
  Country: None (occurrence: None)
  Receive Date: 20081015
  Receipt Date: 20080930
  Transmission Date: 20090506
  Serious: Yes (Hospitalization)
  Sender: FDA-Public Use
  Company Number: 034170

PATIENT
  Age: 17 Year
  Sex: Female

DRUGS (4)
  1. CLARAVIS [Suspect]
     Indication: ACNE
     Dosage: 20 MG, BID, ORAL
     Route: 048
     Dates: start: 20080620, end: 20080101
  2. CLARAVIS [Suspect]
     Indication: ACNE
     Dosage: 20 MG, BID, ORAL
     Route: 048
     Dates: start: 20080101
  3. ACCUTANE [Suspect]
     Dosage: ORAL
     Route: 048
     Dates: start: 20080615
  4. AVIANE-28 [Concomitant]

REACTIONS (2)
  - CHOLELITHIASIS [None]
  - GALLBLADDER DISORDER [None]
